FAERS Safety Report 23160490 (Version 1)
Quarter: 2023Q4

REPORT INFORMATION
  Report Type: Report from Study
  Country: FR (occurrence: FR)
  Receive Date: 20231108
  Receipt Date: 20231108
  Transmission Date: 20240109
  Serious: Yes (Other)
  Sender: FDA-Public Use
  Company Number: FR-ALNYLAM PHARMACEUTICALS, INC.-ALN-2023-005165

PATIENT

DRUGS (2)
  1. AMVUTTRA [Suspect]
     Active Substance: VUTRISIRAN
     Indication: Product used for unknown indication
     Dosage: UNK
     Route: 065
  2. VYNDAQEL [Suspect]
     Active Substance: TAFAMIDIS MEGLUMINE
     Indication: Product used for unknown indication
     Route: 065

REACTIONS (7)
  - Cardiac pacemaker insertion [Unknown]
  - Arrhythmia [Unknown]
  - Gout [Unknown]
  - Drug ineffective [Unknown]
  - Cardioversion [Unknown]
  - Libido decreased [Unknown]
  - Decreased appetite [Unknown]
